FAERS Safety Report 9994871 (Version 1)
Quarter: 2014Q1

REPORT INFORMATION
  Report Type: Spontaneous
  Country: DE (occurrence: None)
  Receive Date: 20140306
  Receipt Date: 20140306
  Transmission Date: 20141002
  Serious: Yes (Other)
  Sender: FDA-Public Use
  Company Number: AUR-APL-2014-02376

PATIENT
  Age: 29 Year
  Sex: Female
  Weight: 61 kg

DRUGS (4)
  1. LAMOTRIGINE [Suspect]
     Indication: BIPOLAR DISORDER
     Route: 048
     Dates: start: 20120407, end: 20121206
  2. SERTRALINE (SERTRALINE) [Suspect]
     Indication: DEPRESSION
     Route: 048
     Dates: start: 20120407, end: 20121206
  3. L-THYROXIN HENNING (LEVOTHYROXINE SODIUM) [Concomitant]
  4. CORDES BPO 5 (BENZOYL PEROXIDE) [Concomitant]

REACTIONS (6)
  - Maternal exposure during pregnancy [None]
  - Headache [None]
  - Convulsion [None]
  - Eclampsia [None]
  - Caesarean section [None]
  - Premature delivery [None]
